FAERS Safety Report 6339020-9 (Version None)
Quarter: 2009Q3

REPORT INFORMATION
  Report Type: 
  Country: None (occurrence: None)
  Receive Date: 20090903
  Receipt Date: 20090805
  Transmission Date: 20100115
  Serious: No
  Sender: FDA-Public Use
  Company Number: US-BAYER-200913140BCC

PATIENT
  Age: 84 Year
  Sex: Female
  Weight: 64 kg

DRUGS (5)
  1. ALEVE (CAPLET) [Suspect]
     Indication: ARTHRITIS
     Dosage: TOTAL DAILY DOSE: 220 MG  UNIT DOSE: 220 MG
     Route: 048
     Dates: start: 20090201, end: 20090805
  2. ZETIA [Concomitant]
  3. SYNTHROID [Concomitant]
  4. ENTERIC ASPIRIN [Concomitant]
     Route: 048
  5. SPIRONOLACTONE [Concomitant]

REACTIONS (1)
  - ARTHRALGIA [None]
